FAERS Safety Report 19826548 (Version 1)
Quarter: 2021Q3

REPORT INFORMATION
  Report Type: Spontaneous
  Country: CA (occurrence: CA)
  Receive Date: 20210913
  Receipt Date: 20210913
  Transmission Date: 20211014
  Serious: Yes (Hospitalization)
  Sender: FDA-Public Use
  Company Number: CA-PFIZER INC-2021443441

PATIENT
  Age: 47 Year
  Sex: Female
  Weight: 115 kg

DRUGS (16)
  1. ZIRABEV [Suspect]
     Active Substance: BEVACIZUMAB-BVZR
     Dosage: 1100 MG (800MG+300MG) LEFTFOREARM
     Route: 042
     Dates: start: 20210806
  2. DEXAMETHASONE. [Concomitant]
     Active Substance: DEXAMETHASONE
     Dosage: UNK
  3. LOMUSTINE. [Concomitant]
     Active Substance: LOMUSTINE
     Dosage: UNK
  4. ZIRABEV [Suspect]
     Active Substance: BEVACIZUMAB-BVZR
     Dosage: 1500 MG, EVERY 3 WEEKS (1200 MG + 300 MG) (LEFT FOREARM)
     Route: 042
     Dates: start: 20210423, end: 20210423
  5. TRAZIMERA [Concomitant]
     Active Substance: TRASTUZUMAB-QYYP
     Dosage: 6 MG/KG EVERY 3 WEEKS
     Route: 042
     Dates: start: 20210122
  6. ZIRABEV [Suspect]
     Active Substance: BEVACIZUMAB-BVZR
     Indication: GLIOBLASTOMA
     Dosage: 1500 MG, EVERY 3 WEEKS
     Route: 042
  7. ZIRABEV [Suspect]
     Active Substance: BEVACIZUMAB-BVZR
     Dosage: 1600 MG (400MG+1200MG), LEFT FOREARM
     Route: 042
     Dates: start: 20210625
  8. ZIRABEV [Suspect]
     Active Substance: BEVACIZUMAB-BVZR
     Dosage: 1600 MG, EVERY 3 WEEKS
     Route: 042
     Dates: start: 20210423, end: 20210820
  9. ZIRABEV [Suspect]
     Active Substance: BEVACIZUMAB-BVZR
     Dosage: 1600 MG (400MG+1200MG), LEFT ANTECUBITAL
     Route: 042
     Dates: start: 20210625
  10. ZIRABEV [Suspect]
     Active Substance: BEVACIZUMAB-BVZR
     Dosage: 1600 MG, EVERY 3 WEEKS
     Route: 042
     Dates: start: 20210820, end: 20210820
  11. ZIRABEV [Suspect]
     Active Substance: BEVACIZUMAB-BVZR
     Dosage: 1500 MG, EVERY 3 WEEKS (1200 MG + 300 MG) (LEFT FOREARM)
     Route: 042
     Dates: start: 20210423, end: 20210423
  12. CAPECITABINE. [Concomitant]
     Active Substance: CAPECITABINE
     Dosage: UNK
  13. TUKYSA [Concomitant]
     Active Substance: TUCATINIB
     Dosage: UNK
  14. ZIRABEV [Suspect]
     Active Substance: BEVACIZUMAB-BVZR
     Dosage: 500 MG (400 MG+ 100MG) RIGHT ANTECUBITAL
     Route: 042
     Dates: start: 20210514
  15. ZIRABEV [Suspect]
     Active Substance: BEVACIZUMAB-BVZR
     Dosage: 1100 MG (800MG+300MG) LEFTFOREARM
     Route: 042
     Dates: start: 20210806
  16. ZIRABEV [Suspect]
     Active Substance: BEVACIZUMAB-BVZR
     Dosage: 500 MG (400 MG+ 100MG) RIGHT ANTECUBITAL
     Route: 042
     Dates: start: 20210514

REACTIONS (9)
  - Weight increased [Not Recovered/Not Resolved]
  - Intentional product use issue [Unknown]
  - General physical health deterioration [Unknown]
  - Oral candidiasis [Unknown]
  - Product use issue [Unknown]
  - Incorrect dose administered [Unknown]
  - Blood pressure fluctuation [Unknown]
  - Off label use [Unknown]
  - Rash [Unknown]

NARRATIVE: CASE EVENT DATE: 20210423
